FAERS Safety Report 5029890-9 (Version None)
Quarter: 2006Q2

REPORT INFORMATION
  Report Type: 
  Country: None (occurrence: None)
  Receive Date: 20060620
  Receipt Date: 20040727
  Transmission Date: 20061013
  Serious: Yes (Disabling)
  Sender: FDA-Public Use
  Company Number: 2004AP03876

PATIENT
  Age: 18041 Day
  Sex: Female

DRUGS (10)
  1. IRESSA [Suspect]
     Indication: LUNG NEOPLASM MALIGNANT
     Route: 048
     Dates: start: 20020930, end: 20040108
  2. IRESSA [Suspect]
     Indication: LUNG ADENOCARCINOMA
     Route: 048
     Dates: start: 20020930, end: 20040108
  3. IRESSA [Suspect]
     Route: 048
  4. IRESSA [Suspect]
     Route: 048
  5. CISPLATIN [Suspect]
     Dosage: ADMINISTERED ON DAY 2.  2 CYCLES RECEIVED
     Dates: start: 20010201, end: 20010401
  6. DOCETAXEL [Suspect]
     Dosage: ADMINISTERED ON DAY 2.  2 CYCLES RECEIVED
     Dates: start: 20010201, end: 20010401
  7. IRINOTECAN [Suspect]
     Dosage: ADMINISTERED ON DAY 2.  2 CYCLES RECEIVED.
     Dates: start: 20010201, end: 20010401
  8. PURSENNID [Concomitant]
     Indication: CONSTIPATION
     Route: 048
  9. RINDERON A [Concomitant]
     Indication: SKIN DISORDER
     Route: 061
  10. RADIATION THERAPY [Concomitant]
     Dosage: CYBER KNIFE - 22.933 GY. 3D CONFORMAL RADIOTHERAPY AT RIGHT FRONTAL LOBE.
     Dates: start: 20010216

REACTIONS (3)
  - ACUTE PROMYELOCYTIC LEUKAEMIA [None]
  - DRY SKIN [None]
  - RASH [None]
